FAERS Safety Report 15689651 (Version 2)
Quarter: 2018Q4

REPORT INFORMATION
  Report Type: Spontaneous
  Country: US (occurrence: US)
  Receive Date: 20181205
  Receipt Date: 20181205
  Transmission Date: 20190205
  Serious: No
  Sender: FDA-Public Use
  Company Number: US-NOVOPROD-562799

PATIENT
  Age: 41 Year
  Sex: Male
  Weight: 86.44 kg

DRUGS (3)
  1. NOVOLIN R [Suspect]
     Active Substance: INSULIN HUMAN
     Indication: TYPE 1 DIABETES MELLITUS
     Dosage: 8 UNITS IN THE AM AND PM
     Route: 058
     Dates: start: 20160624
  2. NOVOLIN N [Suspect]
     Active Substance: INSULIN HUMAN
     Indication: TYPE 1 DIABETES MELLITUS
     Dosage: 22 UNITS IN THE AM AND 17 UNITS IN THE PM
     Route: 058
  3. ATORVASTATIN HENNIG [Concomitant]
     Indication: PROPHYLAXIS
     Dosage: 40 MG, QD
     Route: 048
     Dates: start: 20171027

REACTIONS (4)
  - Seborrhoeic keratosis [Unknown]
  - Paraesthesia [Unknown]
  - Dermatitis [Unknown]
  - Blood glucose increased [Not Recovered/Not Resolved]

NARRATIVE: CASE EVENT DATE: 2016
